FAERS Safety Report 22366533 (Version 1)
Quarter: 2023Q2

REPORT INFORMATION
  Report Type: Spontaneous
  Country: US (occurrence: None)
  Receive Date: 20230524
  Receipt Date: 20230524
  Transmission Date: 20230721
  Serious: No
  Sender: FDA-Public Use
  Company Number: None

PATIENT
  Age: 12 Year
  Sex: Female
  Weight: 38.7 kg

DRUGS (1)
  1. ODACTRA [Suspect]
     Active Substance: DERMATOPHAGOIDES FARINAE\DERMATOPHAGOIDES PTERONYSSINUS
     Indication: Rhinitis allergic
     Dosage: FREQUENCY : DAILY;?
     Route: 060

REACTIONS (3)
  - Pharyngeal paraesthesia [None]
  - Paraesthesia oral [None]
  - Urticaria [None]

NARRATIVE: CASE EVENT DATE: 20230515
